FAERS Safety Report 17981942 (Version 1)
Quarter: 2020Q3

REPORT INFORMATION
  Report Type: Spontaneous
  Country: BR (occurrence: BR)
  Receive Date: 20200706
  Receipt Date: 20200706
  Transmission Date: 20201103
  Serious: Yes (Other)
  Sender: FDA-Public Use
  Company Number: BR-CELLTRION INC.-2018BR018937

PATIENT

DRUGS (1)
  1. REMSIMA [Suspect]
     Active Substance: INFLIXIMAB
     Indication: PRODUCT USED FOR UNKNOWN INDICATION
     Dosage: UNK
     Route: 065
     Dates: start: 201712, end: 201901

REACTIONS (5)
  - Pneumonia [Unknown]
  - Ear neoplasm [Unknown]
  - Product dose omission issue [Unknown]
  - Chronic obstructive pulmonary disease [Unknown]
  - Colitis [Unknown]
